FAERS Safety Report 5689320-0 (Version None)
Quarter: 2008Q1

REPORT INFORMATION
  Report Type: 
  Country: None (occurrence: None)
  Receive Date: 20080328
  Receipt Date: 20080318
  Transmission Date: 20080703
  Serious: Yes (Other)
  Sender: FDA-Public Use
  Company Number: 2008006751

PATIENT
  Age: 6 Year
  Sex: Female

DRUGS (1)
  1. LISTERINE AGENT COOL BLUE BUBBLE BLAST (NO ACTIVE INGREDIENT) [Suspect]
     Dosage: UNSPECIFIED AMOUNT DAILY; ORAL
     Route: 048

REACTIONS (3)
  - LETHARGY [None]
  - PYREXIA [None]
  - WEIGHT DECREASED [None]
